FAERS Safety Report 7596734-0 (Version None)
Quarter: 2011Q3

REPORT INFORMATION
  Report Type: 
  Country: None (occurrence: None)
  Receive Date: 20110708
  Receipt Date: 20110705
  Transmission Date: 20111222
  Serious: No
  Sender: FDA-Public Use
  Company Number: US-PFIZER INC-2011151315

PATIENT
  Age: 38 Year

DRUGS (1)
  1. CELEBREX [Suspect]
     Dosage: 400 UNK, PER DAY

REACTIONS (3)
  - SWELLING FACE [None]
  - PARAESTHESIA [None]
  - EUPHORIC MOOD [None]
